FAERS Safety Report 16550873 (Version 1)
Quarter: 2019Q3

REPORT INFORMATION
  Report Type: Spontaneous
  Country: US (occurrence: US)
  Receive Date: 20190710
  Receipt Date: 20190710
  Transmission Date: 20191004
  Serious: No
  Sender: FDA-Public Use
  Company Number: US-TEVA-2019-US-1071539

PATIENT
  Sex: Female

DRUGS (1)
  1. DESVENLAFAXINE SODIUM [Suspect]
     Active Substance: DESVENLAFAXINE
     Dosage: EXTENDED-RELEASE TABLETS; DOSE STRENGTH: 50 (UNITS UNSPECIFIED), BEGAN APPROXIMATELY 3 MONTHS AGO
     Dates: start: 201903

REACTIONS (1)
  - Somnolence [Unknown]
